FAERS Safety Report 6566337-5 (Version None)
Quarter: 2010Q1

REPORT INFORMATION
  Report Type: 
  Country: None (occurrence: None)
  Receive Date: 20100202
  Receipt Date: 20100127
  Transmission Date: 20100710
  Serious: Yes (Hospitalization)
  Sender: FDA-Public Use
  Company Number: FR-SANOFI-AVENTIS-2010SA004817

PATIENT
  Age: 56 Year
  Sex: Male

DRUGS (20)
  1. DOLIPRANE [Suspect]
     Indication: DRUG USE FOR UNKNOWN INDICATION
     Dosage: DOSE:4 UNIT(S)
     Route: 048
     Dates: start: 20080718
  2. LOVENOX [Suspect]
     Indication: DRUG USE FOR UNKNOWN INDICATION
     Dosage: DOSE:1 UNIT(S)
     Route: 058
     Dates: start: 20080705
  3. TAVANIC [Suspect]
     Indication: DRUG USE FOR UNKNOWN INDICATION
     Dosage: DOSE:2 UNIT(S)
     Route: 042
     Dates: start: 20080703
  4. ROCEPHIN [Suspect]
     Route: 042
     Dates: start: 20080629, end: 20080702
  5. MOXIFLOXACIN HCL [Suspect]
     Dosage: DOSE:1 UNIT(S)
     Route: 042
     Dates: start: 20080629, end: 20080702
  6. ZECLAR [Suspect]
     Dosage: DOSE:2 UNIT(S)
     Route: 042
     Dates: start: 20080629, end: 20080714
  7. PERFALGAN [Suspect]
     Indication: DRUG USE FOR UNKNOWN INDICATION
     Dosage: DOSE:4 UNIT(S)
     Route: 042
     Dates: start: 20080629, end: 20080717
  8. CIPROFLOXACIN HCL [Suspect]
     Dosage: DOSE:3 UNIT(S)
     Route: 042
     Dates: start: 20080702, end: 20080704
  9. TAZOCILLINE [Suspect]
     Indication: STAPHYLOCOCCAL INFECTION
     Dosage: DOSE:4 UNIT(S)
     Route: 042
     Dates: start: 20080707, end: 20080711
  10. AERIUS [Suspect]
     Indication: DRUG USE FOR UNKNOWN INDICATION
     Dosage: DOSE:1 UNIT(S)
     Route: 048
     Dates: start: 20080709
  11. VENOFER [Suspect]
     Indication: DRUG USE FOR UNKNOWN INDICATION
     Dosage: DOSE:3 UNIT(S)
     Route: 048
     Dates: start: 20080711
  12. NUTRIFLEX ^VIFOR^ [Suspect]
     Indication: DRUG USE FOR UNKNOWN INDICATION
  13. ZYVOXID [Suspect]
     Indication: DRUG USE FOR UNKNOWN INDICATION
     Dosage: DOSE:3 UNIT(S)
     Route: 048
     Dates: start: 20080714
  14. OMEPRAZOLE [Suspect]
     Dosage: DOSE:1 UNIT(S)
     Route: 048
     Dates: start: 20080717
  15. IMIPENEM AND CILASTATIN SODIUM [Suspect]
     Indication: STAPHYLOCOCCAL INFECTION
     Dosage: DOSE:3 UNIT(S)
     Route: 042
     Dates: start: 20080718
  16. TINZAPARIN SODIUM [Concomitant]
     Indication: DRUG USE FOR UNKNOWN INDICATION
     Dosage: DOSE:1 UNIT(S)
     Route: 042
     Dates: start: 20080629, end: 20080704
  17. SUCRALFATE [Concomitant]
     Indication: DRUG USE FOR UNKNOWN INDICATION
     Dosage: DOSE:3 UNIT(S)
     Route: 048
     Dates: start: 20080630, end: 20080716
  18. SOLU-MEDROL [Concomitant]
     Indication: DRUG USE FOR UNKNOWN INDICATION
     Dosage: DOSE:1 UNIT(S)
     Route: 048
     Dates: start: 20080720
  19. TRIFLUCAN [Concomitant]
     Indication: DRUG USE FOR UNKNOWN INDICATION
     Dosage: DOSE:1 UNIT(S)
     Route: 048
     Dates: start: 20080725
  20. ATARAX [Concomitant]
     Indication: DRUG USE FOR UNKNOWN INDICATION
     Route: 048
     Dates: start: 20080725

REACTIONS (2)
  - CYTOLYTIC HEPATITIS [None]
  - JAUNDICE [None]
